FAERS Safety Report 8821532 (Version 3)
Quarter: 2013Q1

REPORT INFORMATION
  Report Type: Spontaneous
  Country: US (occurrence: US)
  Receive Date: 20121002
  Receipt Date: 20130215
  Transmission Date: 20140127
  Serious: Yes (Other)
  Sender: FDA-Public Use
  Company Number: US-PFIZER INC-2012243498

PATIENT
  Age: 69 Year
  Sex: Male
  Weight: 107 kg

DRUGS (6)
  1. GEODON [Suspect]
     Indication: AGITATION
     Dosage: 10MG, 2X/DAY
     Route: 030
     Dates: start: 20120915
  2. GEODON [Suspect]
     Indication: ENCEPHALOPATHY
  3. PROPOFOL [Concomitant]
     Dosage: UNK
  4. PRECEDEX [Concomitant]
     Dosage: UNK
  5. ATIVAN [Concomitant]
     Dosage: UNK
  6. MORPHINE [Concomitant]
     Dosage: UNK

REACTIONS (3)
  - Off label use [Unknown]
  - Loss of consciousness [Recovered/Resolved]
  - Sedation [Recovered/Resolved]
